FAERS Safety Report 11135606 (Version 1)
Quarter: 2015Q2

REPORT INFORMATION
  Report Type: Spontaneous
  Country: US (occurrence: None)
  Receive Date: 20150522
  Receipt Date: 20150522
  Transmission Date: 20150821
  Serious: No
  Sender: FDA-Public Use
  Company Number: None

PATIENT
  Sex: Female

DRUGS (1)
  1. CAPECITABINE. [Suspect]
     Active Substance: CAPECITABINE
     Indication: MALIGNANT NIPPLE NEOPLASM
     Dosage: 2 TABLETS (1000MG) TWICE A DAY FOR 14 DAYS EVERY PO
     Route: 048
     Dates: start: 20141227, end: 20150518

REACTIONS (2)
  - Adverse event [None]
  - Therapy cessation [None]
